FAERS Safety Report 7208493-1 (Version None)
Quarter: 2010Q4

REPORT INFORMATION
  Report Type: 
  Country: None (occurrence: None)
  Receive Date: 20101230
  Receipt Date: 20101230
  Transmission Date: 20110411
  Serious: No
  Sender: FDA-Public Use
  Company Number: None

PATIENT
  Sex: Female
  Weight: 102.0593 kg

DRUGS (2)
  1. VANCOMYCIN [Suspect]
     Indication: CELLULITIS
     Dosage: 1.25 GM Q12H IV
     Route: 042
     Dates: start: 20101111, end: 20101130
  2. CEFTRIAXONE [Suspect]
     Indication: CELLULITIS
     Dosage: 1 GM Q24H IV
     Route: 042
     Dates: start: 20101111, end: 20101130

REACTIONS (3)
  - RASH ERYTHEMATOUS [None]
  - SKIN EXFOLIATION [None]
  - SWELLING FACE [None]
